APPROVED DRUG PRODUCT: SEVELAMER CARBONATE
Active Ingredient: SEVELAMER CARBONATE
Strength: 800MG
Dosage Form/Route: TABLET;ORAL
Application: A201069 | Product #001
Applicant: STRIDES PHARMA INTERNATIONAL AG
Approved: Aug 5, 2020 | RLD: No | RS: No | Type: DISCN